FAERS Safety Report 21700749 (Version 1)
Quarter: 2022Q4

REPORT INFORMATION
  Report Type: Spontaneous
  Country: US (occurrence: None)
  Receive Date: 20221207
  Receipt Date: 20221207
  Transmission Date: 20230113
  Serious: No
  Sender: FDA-Public Use
  Company Number: None

PATIENT
  Age: 69 Year
  Sex: Female
  Weight: 88.18 kg

DRUGS (16)
  1. LENALIDOMIDE [Suspect]
     Active Substance: LENALIDOMIDE
     Indication: Plasma cell myeloma
     Dosage: OTHER FREQUENCY : 3W, 1W OFF;?
     Route: 048
  2. ALLEGRA ALLERGY [Concomitant]
     Active Substance: FEXOFENADINE HYDROCHLORIDE
  3. Allergy eye drop [Concomitant]
  4. BASAGLAR [Concomitant]
     Active Substance: INSULIN GLARGINE
  5. DEXAMETHASONE [Concomitant]
     Active Substance: DEXAMETHASONE
  6. LEVOTHYROXINE [Concomitant]
     Active Substance: LEVOTHYROXINE
  7. LISINOPRIL [Concomitant]
     Active Substance: LISINOPRIL
  8. NABUMETONE [Concomitant]
     Active Substance: NABUMETONE
  9. OMEPRAZOLE [Concomitant]
     Active Substance: OMEPRAZOLE
  10. DIETARY SUPPLEMENT [Concomitant]
     Active Substance: DIETARY SUPPLEMENT
  11. PROCRIT [Concomitant]
     Active Substance: ERYTHROPOIETIN
  12. ASPIRIN [Concomitant]
     Active Substance: ASPIRIN
  13. Theratears Ophthalmic [Concomitant]
  14. TUMS ULTRA [Concomitant]
     Active Substance: CALCIUM CARBONATE
  15. VITAMIN C [Concomitant]
     Active Substance: ASCORBIC ACID
  16. VITAMIN D3 [Concomitant]
     Active Substance: CHOLECALCIFEROL

REACTIONS (1)
  - Urinary tract infection [None]
